FAERS Safety Report 4871815-0 (Version None)
Quarter: 2006Q1

REPORT INFORMATION
  Report Type: 
  Country: None (occurrence: None)
  Receive Date: 20060104
  Receipt Date: 20051223
  Transmission Date: 20060701
  Serious: Yes (Other)
  Sender: FDA-Public Use
  Company Number: SE-JNJFOC-20051205479

PATIENT
  Age: 81 Year
  Sex: Male

DRUGS (13)
  1. REMINYL [Suspect]
     Dosage: DOSE INCREASED
     Route: 048
     Dates: start: 20050726
  2. REMINYL [Suspect]
     Route: 048
     Dates: start: 20050726
  3. ADALAT [Concomitant]
  4. DURBIS RETARD [Concomitant]
  5. ACETAMINOPHEN [Concomitant]
  6. PREDNISOLONE [Concomitant]
  7. TROMBYL [Concomitant]
  8. TRIOBE [Concomitant]
  9. TRIOBE [Concomitant]
  10. TRIOBE [Concomitant]
  11. TERRA-CORTRIL MED POLYMYXIN B [Concomitant]
  12. TERRA-CORTRIL MED POLYMYXIN B [Concomitant]
  13. TERRA-CORTRIL MED POLYMYXIN B [Concomitant]

REACTIONS (1)
  - ASTHMA [None]
